FAERS Safety Report 12114881 (Version 1)
Quarter: 2016Q1

REPORT INFORMATION
  Report Type: Spontaneous
  Country: US (occurrence: US)
  Receive Date: 20160225
  Receipt Date: 20160225
  Transmission Date: 20160526
  Serious: Yes (Other)
  Sender: FDA-Public Use
  Company Number: US-BAYER-2016-036762

PATIENT
  Age: 67 Year
  Sex: Male

DRUGS (1)
  1. ULTRAVIST [Suspect]
     Active Substance: IOPROMIDE
     Indication: NUCLEAR MAGNETIC RESONANCE IMAGING RENAL
     Dosage: 102 ML, ONCE AT 2 ML/SEC
     Dates: start: 20150824, end: 20150824

REACTIONS (1)
  - Eye swelling [None]

NARRATIVE: CASE EVENT DATE: 20150824
